FAERS Safety Report 9652279 (Version 1)
Quarter: 2013Q4

REPORT INFORMATION
  Report Type: Report from Study
  Country: BR (occurrence: BR)
  Receive Date: 20131029
  Receipt Date: 20131029
  Transmission Date: 20140711
  Serious: Yes (Disabling, Other)
  Sender: FDA-Public Use
  Company Number: BR-JNJFOC-20131016953

PATIENT
  Age: 69 Year
  Sex: Female
  Weight: 62 kg

DRUGS (8)
  1. XARELTO [Suspect]
     Indication: THROMBOSIS PROPHYLAXIS
     Route: 048
     Dates: start: 20130821
  2. FOLIC ACID [Concomitant]
     Indication: VITAMIN SUPPLEMENTATION
     Route: 048
     Dates: start: 2010
  3. LOSARTAN [Concomitant]
     Indication: BLOOD PRESSURE MANAGEMENT
     Route: 048
     Dates: start: 2010
  4. ATENOLOL [Concomitant]
     Indication: BLOOD PRESSURE MANAGEMENT
     Route: 048
     Dates: start: 2010
  5. DESALEX [Concomitant]
     Indication: ALLERGIC RESPIRATORY DISEASE
     Route: 048
     Dates: start: 201210
  6. MONTELUKAST [Concomitant]
     Indication: ALLERGIC RESPIRATORY DISEASE
     Route: 048
     Dates: start: 201310
  7. BUSONID [Concomitant]
     Indication: ALLERGIC RESPIRATORY DISEASE
     Route: 045
     Dates: start: 201310
  8. PURAN T4 [Concomitant]
     Indication: DEPRESSED MOOD
     Route: 048
     Dates: start: 201310

REACTIONS (8)
  - Oedema peripheral [Not Recovered/Not Resolved]
  - Abasia [Unknown]
  - Musculoskeletal stiffness [Not Recovered/Not Resolved]
  - Decreased appetite [Not Recovered/Not Resolved]
  - Dysgeusia [Not Recovered/Not Resolved]
  - Local swelling [Recovered/Resolved]
  - Vision blurred [Recovered/Resolved]
  - Dizziness [Recovered/Resolved]
